FAERS Safety Report 8314697-7 (Version None)
Quarter: 2012Q2

REPORT INFORMATION
  Report Type: 
  Country: None (occurrence: None)
  Receive Date: 20120426
  Receipt Date: 20120418
  Transmission Date: 20120825
  Serious: Yes (Death, Hospitalization, Other)
  Sender: FDA-Public Use
  Company Number: SE-ELI_LILLY_AND_COMPANY-SE201203005201

PATIENT
  Sex: Male

DRUGS (3)
  1. ZYPREXA [Suspect]
     Indication: SOMATOFORM DISORDER
     Dosage: 40 MG, QD
  2. ZYPREXA [Suspect]
     Dosage: UNK, UNKNOWN
  3. RISPERDAL [Concomitant]
     Indication: SOMATOFORM DISORDER

REACTIONS (4)
  - OVERDOSE [None]
  - CONVULSION [None]
  - ADVERSE DRUG REACTION [None]
  - DEATH [None]
